FAERS Safety Report 7473059-5 (Version None)
Quarter: 2011Q2

REPORT INFORMATION
  Report Type: 
  Country: None (occurrence: None)
  Receive Date: 20110511
  Receipt Date: 20110428
  Transmission Date: 20111010
  Serious: Yes (Hospitalization, Other)
  Sender: FDA-Public Use
  Company Number: US-ELI_LILLY_AND_COMPANY-US201105000445

PATIENT
  Age: 70 Year
  Sex: Female

DRUGS (11)
  1. CYMBALTA [Suspect]
     Dosage: 60 MG, QD
     Route: 065
  2. LORATADINE [Concomitant]
     Dosage: 10 MG, OTHER
     Route: 065
  3. TIZANIDINE [Concomitant]
     Dosage: 4 MG, TID
     Route: 065
  4. OMEPRAZOLE [Concomitant]
     Dosage: 20 MG, BID
     Route: 065
  5. TOLTERODINE TARTRATE [Concomitant]
     Dosage: 4 MG, QD
     Route: 065
  6. ZOLPIDEM [Concomitant]
     Dosage: 10 MG, EACH EVENING
     Route: 065
  7. ZONEGRAN [Concomitant]
     Dosage: 100 MG, EACH EVENING
     Route: 065
  8. CLONAZEPAM [Concomitant]
     Dosage: 2 MG, EACH EVENING
     Route: 065
  9. NORTRIPTYLINE [Concomitant]
     Dosage: 50 MG, EACH EVENING
     Route: 065
  10. FUROSEMIDE [Concomitant]
     Dosage: 80 MG, QD
     Route: 065
  11. LYRICA [Concomitant]
     Dosage: 75 MG, TID
     Route: 065

REACTIONS (2)
  - MENTAL STATUS CHANGES [None]
  - DRUG SCREEN POSITIVE [None]
